FAERS Safety Report 15323504 (Version 1)
Quarter: 2018Q3

REPORT INFORMATION
  Report Type: Spontaneous
  Country: GB (occurrence: GB)
  Receive Date: 20180827
  Receipt Date: 20180827
  Transmission Date: 20181010
  Serious: Yes (Other)
  Sender: FDA-Public Use
  Company Number: PHHY2018GB005628

PATIENT
  Sex: Male
  Weight: 62 kg

DRUGS (2)
  1. ITRACONAZOLE. [Interacting]
     Active Substance: ITRACONAZOLE
     Dosage: 400 MILLIGRAM DAILY;
     Route: 048
  2. ITRACONAZOLE. [Suspect]
     Active Substance: ITRACONAZOLE
     Indication: BRONCHOPULMONARY ASPERGILLOSIS
     Dosage: 200 MG, BID
     Route: 065

REACTIONS (2)
  - Drug interaction [Unknown]
  - Neuropathy peripheral [Unknown]
